FAERS Safety Report 25773495 (Version 1)
Quarter: 2025Q3

REPORT INFORMATION
  Report Type: Spontaneous
  Country: US (occurrence: US)
  Receive Date: 20250908
  Receipt Date: 20250908
  Transmission Date: 20251020
  Serious: Yes (Life-Threatening, Hospitalization)
  Sender: MYLAN
  Company Number: US-MYLANLABS-2025M1075631

PATIENT
  Age: 40 Year
  Sex: Male

DRUGS (15)
  1. EPINEPHRINE [Suspect]
     Active Substance: EPINEPHRINE
     Indication: Right ventricular failure
     Dosage: 0.02 MICROGRAM/KILOGRAM, QMINUTE
  2. EPINEPHRINE [Suspect]
     Active Substance: EPINEPHRINE
     Dosage: 0.03 MICROGRAM/KILOGRAM, QMINUTE
  3. EPINEPHRINE [Suspect]
     Active Substance: EPINEPHRINE
  4. NITROUS OXIDE [Suspect]
     Active Substance: NITROUS OXIDE
     Indication: Right ventricular failure
  5. ISOPROTERENOL [Suspect]
     Active Substance: ISOPROTERENOL
     Indication: Right ventricular failure
  6. DOBUTAMINE [Suspect]
     Active Substance: DOBUTAMINE HYDROCHLORIDE
     Indication: Right ventricular failure
     Dosage: 2.5 MICROGRAM/KILOGRAM, QMINUTE
  7. DOBUTAMINE [Suspect]
     Active Substance: DOBUTAMINE HYDROCHLORIDE
     Dosage: 5 MICROGRAM/KILOGRAM, QMINUTE
  8. DOBUTAMINE [Suspect]
     Active Substance: DOBUTAMINE HYDROCHLORIDE
     Dosage: 7.5 MICROGRAM/KILOGRAM, QMINUTE
  9. DOBUTAMINE [Suspect]
     Active Substance: DOBUTAMINE HYDROCHLORIDE
  10. MILRINONE [Suspect]
     Active Substance: MILRINONE
     Indication: Right ventricular failure
     Dosage: 0.25 MICROGRAM/KILOGRAM, QMINUTE
  11. MILRINONE [Suspect]
     Active Substance: MILRINONE
     Dosage: 0.5 MICROGRAM/KILOGRAM, QMINUTE
  12. THYMOGLOBULIN [Concomitant]
     Active Substance: LAPINE T-LYMPHOCYTE IMMUNE GLOBULIN
     Indication: Immunosuppressant drug therapy
  13. MYCOPHENOLATE MOFETIL [Concomitant]
     Active Substance: MYCOPHENOLATE MOFETIL
     Indication: Immunosuppressant drug therapy
  14. TACROLIMUS [Concomitant]
     Active Substance: TACROLIMUS
     Indication: Immunosuppressant drug therapy
  15. PREDNISONE [Concomitant]
     Active Substance: PREDNISONE
     Indication: Immunosuppressant drug therapy

REACTIONS (1)
  - Drug ineffective [Unknown]
